FAERS Safety Report 24218632 (Version 1)
Quarter: 2024Q3

REPORT INFORMATION
  Report Type: Spontaneous
  Country: US (occurrence: None)
  Receive Date: 20240815
  Receipt Date: 20240815
  Transmission Date: 20241016
  Serious: Yes (Other)
  Sender: Public
  Company Number: None

PATIENT
  Age: 40 Year
  Sex: Female
  Weight: 86.4 kg

DRUGS (1)
  1. ZEPBOUND [Suspect]
     Active Substance: TIRZEPATIDE
     Indication: Weight decreased
     Dosage: OTHER QUANTITY : 4 INJECTION(S);?OTHER FREQUENCY : 1 A WEEK;?OTHER ROUTE : INJECTION;?
     Route: 050
     Dates: start: 20240727

REACTIONS (5)
  - Gastrointestinal disorder [None]
  - Nausea [None]
  - Dyspepsia [None]
  - Diarrhoea [None]
  - Product quality issue [None]

NARRATIVE: CASE EVENT DATE: 20240727
